FAERS Safety Report 14619146 (Version 2)
Quarter: 2018Q2

REPORT INFORMATION
  Report Type: Spontaneous
  Country: DE (occurrence: DE)
  Receive Date: 20180309
  Receipt Date: 20180511
  Transmission Date: 20180711
  Serious: Yes (Hospitalization, Other)
  Sender: FDA-Public Use
  Company Number: DE-AUROBINDO-AUR-APL-2018-012458

PATIENT
  Age: 34 Year
  Sex: Male

DRUGS (15)
  1. ARIPIPRAZOLE TABLETS [Suspect]
     Active Substance: ARIPIPRAZOLE
     Dosage: 1 DOSAGE FORM
  2. QUETIAPINE. [Suspect]
     Active Substance: QUETIAPINE
     Indication: PRODUCT USED FOR UNKNOWN INDICATION
     Dosage: 1 UNK
  3. QUETIAPINE. [Suspect]
     Active Substance: QUETIAPINE
     Dosage: UNK UNK, QD (1)
     Route: 048
     Dates: start: 20161214
  4. QUETIAPINE. [Suspect]
     Active Substance: QUETIAPINE
     Dosage: DF = UP TO 400MG 11-AUG (YR UNK) TO 09-SEP-2016 1 DF = 100 TO 300MG ON 14-DEC-2016 1 DF
     Route: 048
     Dates: start: 20160909
  5. LEVETIRACETAM. [Suspect]
     Active Substance: LEVETIRACETAM
     Indication: EPILEPSY
     Dosage: 500 MG, QD
     Route: 065
  6. KALIUM DURULE [Concomitant]
     Indication: PRODUCT USED FOR UNKNOWN INDICATION
     Dosage: 1 DF, QD (1 DF = 1 POUCH)
     Route: 048
     Dates: start: 20161214
  7. ARIPIPRAZOLE TABLETS [Suspect]
     Active Substance: ARIPIPRAZOLE
     Indication: PRODUCT USED FOR UNKNOWN INDICATION
     Dosage: 1 DOSAGE FORM
  8. ARIPIPRAZOLE TABLETS [Suspect]
     Active Substance: ARIPIPRAZOLE
     Dosage: 20 MILLIGRAM
  9. QUETIAPINE. [Suspect]
     Active Substance: QUETIAPINE
     Dosage: 1 DOSAGE FORM
  10. KALIUM                             /00031401/ [Concomitant]
     Indication: PRODUCT USED FOR UNKNOWN INDICATION
  11. QUETIAPINE. [Suspect]
     Active Substance: QUETIAPINE
     Dosage: 1 DF = UP TO 400MG 11-AUG (YR UNK) TO 09-SEP-2016 1 DF = 100 TO 300MG ON 14-DEC-2016 1 DF = U
     Route: 048
  12. QUETIAPINE. [Suspect]
     Active Substance: QUETIAPINE
     Indication: PRODUCT USED FOR UNKNOWN INDICATION
     Dosage: 1 DOSAGE FORM
  13. ARIPIPRAZOLE TABLETS [Suspect]
     Active Substance: ARIPIPRAZOLE
     Dosage: 1 DF = UPTO 30MG FROM 11-AUG (YR UNK) TO 09-SEP-2016 1DF = 5MG TO 10MG (14-21-DEC-2016)
     Route: 048
  14. ARIPIPRAZOLE TABLETS [Suspect]
     Active Substance: ARIPIPRAZOLE
     Dosage: 1 DF = UPTO 30MG FROM 11-AUG (YR UNK) TO 09-SEP-2016 1DF = 5MG TO 10MG (14-21-DEC-2016)
     Route: 048
  15. ARIPIPRAZOLE TABLETS [Suspect]
     Active Substance: ARIPIPRAZOLE
     Dosage: 5-20 MG ()
     Route: 048
     Dates: start: 20161214, end: 20161221

REACTIONS (6)
  - Epilepsy [Recovered/Resolved]
  - Hospitalisation [Unknown]
  - Stupor [Unknown]
  - Treatment noncompliance [Unknown]
  - Therapy cessation [Unknown]
  - Seizure [Recovered/Resolved]

NARRATIVE: CASE EVENT DATE: 20161214
